FAERS Safety Report 12781050 (Version 2)
Quarter: 2016Q4

REPORT INFORMATION
  Report Type: Spontaneous
  Country: AU (occurrence: AU)
  Receive Date: 20160926
  Receipt Date: 20161216
  Transmission Date: 20170207
  Serious: No
  Sender: FDA-Public Use
  Company Number: AU-WELLSTAT THERAPEUTICS CORPORATION-1057706

PATIENT
  Age: 58 Year
  Sex: Female
  Weight: 48 kg

DRUGS (2)
  1. VISTOGARD [Suspect]
     Active Substance: URIDINE TRIACETATE
     Indication: CHEMOTHERAPY TOXICITY ATTENUATION
     Route: 050
     Dates: start: 20160727, end: 20160731
  2. CAPECITABINE. [Concomitant]
     Active Substance: CAPECITABINE
     Dates: end: 20160723

REACTIONS (7)
  - Drug intolerance [Recovered/Resolved]
  - Off label use [None]
  - Acute respiratory distress syndrome [None]
  - Medication error [Recovered/Resolved]
  - Thrombocytopenia [Recovered/Resolved]
  - Palmar-plantar erythrodysaesthesia syndrome [Recovered/Resolved]
  - Left ventricular dysfunction [Recovered/Resolved]

NARRATIVE: CASE EVENT DATE: 20160727
